FAERS Safety Report 12082946 (Version 1)
Quarter: 2016Q1

REPORT INFORMATION
  Report Type: Spontaneous
  Country: US (occurrence: None)
  Receive Date: 20160216
  Receipt Date: 20160216
  Transmission Date: 20160526
  Serious: Yes (Other)
  Sender: FDA-Public Use
  Company Number: None

PATIENT
  Age: 51 Year
  Sex: Female
  Weight: 77.11 kg

DRUGS (3)
  1. LEVOTHYROXINE 125 MCG TABLET [Suspect]
     Active Substance: LEVOTHYROXINE
     Indication: HYPOTHYROIDISM
     Dosage: 125 MCG, 90 PILLS, ONCE A DAY, BY MOUTH
     Dates: start: 20150629
  2. LEVOTHYROXINE. [Concomitant]
     Active Substance: LEVOTHYROXINE
  3. FLINTSTONE VITAMINS [Concomitant]

REACTIONS (2)
  - Fatigue [None]
  - Product taste abnormal [None]

NARRATIVE: CASE EVENT DATE: 2015
